FAERS Safety Report 25286342 (Version 1)
Quarter: 2025Q2

REPORT INFORMATION
  Report Type: Spontaneous
  Country: US (occurrence: US)
  Receive Date: 20250509
  Receipt Date: 20250509
  Transmission Date: 20250717
  Serious: No
  Sender: ZYDUS PHARM
  Company Number: US-CADILA HEALTHCARE LIMITED-US-ZYDUS-123259

PATIENT

DRUGS (1)
  1. ALLOPURINOL [Suspect]
     Active Substance: ALLOPURINOL
     Indication: Gout
     Route: 047
     Dates: start: 202504

REACTIONS (2)
  - Hordeolum [Recovered/Resolved]
  - Conjunctival haemorrhage [Unknown]

NARRATIVE: CASE EVENT DATE: 20250401
